FAERS Safety Report 18677047 (Version 1)
Quarter: 2020Q4

REPORT INFORMATION
  Report Type: Report from Study
  Country: US (occurrence: US)
  Receive Date: 20201229
  Receipt Date: 20201229
  Transmission Date: 20210114
  Serious: No
  Sender: FDA-Public Use
  Company Number: NVSC2020US337670

PATIENT
  Age: 49 Year
  Sex: Female

DRUGS (1)
  1. PREDNISONE TABLETS USP [Suspect]
     Active Substance: PREDNISONE
     Indication: PRODUCT USED FOR UNKNOWN INDICATION
     Dosage: 1.5 MG
     Route: 048

REACTIONS (4)
  - Increased appetite [Recovered/Resolved]
  - Abdominal distension [Recovered/Resolved]
  - Osteoporosis [Recovered/Resolved]
  - Blood glucose increased [Recovered/Resolved]
